FAERS Safety Report 23754166 (Version 1)
Quarter: 2024Q2

REPORT INFORMATION
  Report Type: Spontaneous
  Country: US (occurrence: None)
  Receive Date: 20240417
  Receipt Date: 20240417
  Transmission Date: 20240716
  Serious: No
  Sender: FDA-Public Use
  Company Number: US-Unichem Pharmaceuticals (USA) Inc-UCM202305-000570

PATIENT
  Sex: Male

DRUGS (4)
  1. ALLOPURINOL [Suspect]
     Active Substance: ALLOPURINOL
     Indication: Gout
  2. ALLOPURINOL [Suspect]
     Active Substance: ALLOPURINOL
  3. ALLOPURINOL [Suspect]
     Active Substance: ALLOPURINOL
     Dosage: TWO TABLETS
  4. AMLODIPINE [Concomitant]
     Active Substance: AMLODIPINE BESYLATE
     Indication: Hypertension
     Dosage: UNKNOWN

REACTIONS (3)
  - Vision blurred [Recovering/Resolving]
  - Chromaturia [Unknown]
  - Somnolence [Unknown]
